FAERS Safety Report 5004983-0 (Version None)
Quarter: 2006Q1

REPORT INFORMATION
  Report Type: 
  Country: None (occurrence: None)
  Receive Date: 20060321
  Receipt Date: 20060104
  Transmission Date: 20060701
  Serious: No
  Sender: FDA-Public Use
  Company Number: YPA20050518

PATIENT
  Age: 83 Year
  Sex: Male

DRUGS (10)
  1. VESICARE [Suspect]
     Indication: POLLAKIURIA
     Dosage: 5 MG, ORAL
     Route: 048
     Dates: start: 20050811
  2. GLUCOSAMINE CHONDROITIN [Concomitant]
  3. CENTRUM SILVER (ASCORBIC ACID, TOCOPHERYL ACETATE, RETINOL, ZINC, CALC [Concomitant]
  4. GEMFIBROZIL [Concomitant]
  5. ATENOLOL [Concomitant]
  6. ASPIRIN [Concomitant]
  7. OMEPRAZOLE [Concomitant]
  8. LISINOPRIL [Concomitant]
  9. TERAZOSIN (TERAZOSIN) [Concomitant]
  10. SANCTURA (TROSPIUM CHLORIDE) [Concomitant]

REACTIONS (1)
  - DRUG INEFFECTIVE [None]
